FAERS Safety Report 21259306 (Version 2)
Quarter: 2023Q4

REPORT INFORMATION
  Report Type: Spontaneous
  Country: US (occurrence: US)
  Receive Date: 20220826
  Receipt Date: 20231020
  Transmission Date: 20240109
  Serious: No
  Sender: FDA-Public Use
  Company Number: US-PFIZER INC-PV202200050724

PATIENT
  Age: 58 Year
  Sex: Female

DRUGS (12)
  1. DOCETAXEL [Suspect]
     Active Substance: DOCETAXEL
     Indication: Breast cancer metastatic
     Dosage: 170 MG, SINGLE (C1)
     Dates: start: 20200813, end: 20200813
  2. DOCETAXEL [Suspect]
     Active Substance: DOCETAXEL
     Dosage: 128 MG, SINGLE (C2)
     Dates: start: 202009, end: 202009
  3. DOCETAXEL [Suspect]
     Active Substance: DOCETAXEL
     Dosage: 84 MG, CYCLIC (EVERY 3 WEEKS, C3-C10)
     Dates: start: 202009, end: 20210401
  4. DOCETAXEL [Suspect]
     Active Substance: DOCETAXEL
     Indication: Breast cancer metastatic
     Dosage: 170 MG, SINGLE (C1)
     Dates: start: 20200813, end: 20200813
  5. DOCETAXEL [Suspect]
     Active Substance: DOCETAXEL
     Dosage: 128 MG, SINGLE (C2)
     Dates: start: 202009, end: 202009
  6. DOCETAXEL [Suspect]
     Active Substance: DOCETAXEL
     Dosage: 84 MG, CYCLIC (EVERY 3 WEEKS, C3-C10)
     Dates: start: 202009, end: 20210401
  7. DOCETAXEL [Suspect]
     Active Substance: DOCETAXEL
     Indication: Breast cancer metastatic
     Dosage: 170 MG, SINGLE (C1)
     Dates: start: 20200813, end: 20200813
  8. DOCETAXEL [Suspect]
     Active Substance: DOCETAXEL
     Dosage: 128 MG, SINGLE (C2)
     Dates: start: 202009, end: 202009
  9. DOCETAXEL [Suspect]
     Active Substance: DOCETAXEL
     Dosage: 84 MG, CYCLIC (EVERY 3 WEEKS, C3-C10)
     Dates: start: 202009, end: 20210401
  10. TAXOTERE [Suspect]
     Active Substance: DOCETAXEL
     Dosage: UNK
     Dates: start: 20200813, end: 20210401
  11. HERCEPTIN [Concomitant]
     Active Substance: TRASTUZUMAB
     Indication: Chemotherapy
     Dosage: UNK
  12. PERTUZUMAB [Concomitant]
     Active Substance: PERTUZUMAB
     Indication: Chemotherapy
     Dosage: UNK

REACTIONS (3)
  - Lacrimation increased [Not Recovered/Not Resolved]
  - Lacrimal structure injury [Unknown]
  - Dacryostenosis acquired [Not Recovered/Not Resolved]

NARRATIVE: CASE EVENT DATE: 20210101
